FAERS Safety Report 5390894-8 (Version None)
Quarter: 2007Q3

REPORT INFORMATION
  Report Type: 
  Country: None (occurrence: None)
  Receive Date: 20070716
  Receipt Date: 20070711
  Transmission Date: 20080115
  Serious: Yes (Hospitalization)
  Sender: FDA-Public Use
  Company Number: 2007BI013460

PATIENT
  Age: 26 Year
  Sex: Male
  Weight: 67 kg

DRUGS (8)
  1. NATALIZUMAB [Suspect]
     Indication: MULTIPLE SCLEROSIS
     Dosage: 30 MG; QM; IV
     Route: 042
     Dates: start: 20061101
  2. CYMBALTA [Concomitant]
  3. METHADONE HCL [Concomitant]
  4. MSIR [Concomitant]
  5. DILAUDID [Concomitant]
  6. FELDENE [Concomitant]
  7. LYRICA [Concomitant]
  8. LACTULOSE [Concomitant]

REACTIONS (25)
  - ANAEMIA [None]
  - ANXIETY [None]
  - CATHETER RELATED COMPLICATION [None]
  - CHEST PAIN [None]
  - CONDITION AGGRAVATED [None]
  - CONSTIPATION [None]
  - DEEP VEIN THROMBOSIS [None]
  - DEPRESSION [None]
  - DIVORCED [None]
  - GASTRIC ULCER [None]
  - HAEMATEMESIS [None]
  - HAEMOPTYSIS [None]
  - HERPES OESOPHAGITIS [None]
  - HYPOKALAEMIA [None]
  - LIP ULCERATION [None]
  - MENTAL DISORDER [None]
  - MULTIPLE SCLEROSIS [None]
  - MYELITIS TRANSVERSE [None]
  - NERVOUS SYSTEM DISORDER [None]
  - ORAL MUCOSAL BLISTERING [None]
  - PAIN [None]
  - PHARYNGITIS STREPTOCOCCAL [None]
  - RETCHING [None]
  - TONGUE ULCERATION [None]
  - WEIGHT DECREASED [None]
